FAERS Safety Report 11911303 (Version 3)
Quarter: 2016Q2

REPORT INFORMATION
  Report Type: Spontaneous
  Country: US (occurrence: US)
  Receive Date: 20160112
  Receipt Date: 20160513
  Transmission Date: 20160815
  Serious: Yes (Other)
  Sender: FDA-Public Use
  Company Number: US-BAYER-2016-005661

PATIENT
  Age: 29 Year
  Sex: Female

DRUGS (8)
  1. ALLEGRA [Concomitant]
     Active Substance: FEXOFENADINE HYDROCHLORIDE
  2. AMPICILLIN [Concomitant]
     Active Substance: AMPICILLIN
  3. MIRENA [Suspect]
     Active Substance: LEVONORGESTREL
     Dosage: 20 MCG/24HR, CONT
     Route: 015
     Dates: start: 20140121, end: 20150211
  4. CITALOPRAM [Concomitant]
     Active Substance: CITALOPRAM HYDROBROMIDE
  5. FEXOFENADINE [Concomitant]
     Active Substance: FEXOFENADINE\FEXOFENADINE HYDROCHLORIDE
  6. ACETAZOLAMIDE. [Concomitant]
     Active Substance: ACETAZOLAMIDE
  7. METROGEL [Concomitant]
     Active Substance: METRONIDAZOLE
  8. DIAMOX SEQUELS [Concomitant]
     Active Substance: ACETAZOLAMIDE

REACTIONS (10)
  - Visual field defect [None]
  - Headache [None]
  - Musculoskeletal pain [None]
  - Vision blurred [None]
  - Tinnitus [None]
  - Weight increased [None]
  - Nausea [None]
  - Neck pain [None]
  - Benign intracranial hypertension [None]
  - Night blindness [None]

NARRATIVE: CASE EVENT DATE: 201405
